FAERS Safety Report 8429739-8 (Version None)
Quarter: 2012Q2

REPORT INFORMATION
  Report Type: 
  Country: None (occurrence: None)
  Receive Date: 20120612
  Receipt Date: 20120608
  Transmission Date: 20120825
  Serious: Yes (Other)
  Sender: FDA-Public Use
  Company Number: US-PFIZER INC-2012138616

PATIENT
  Sex: Male
  Weight: 90.703 kg

DRUGS (11)
  1. LYRICA [Suspect]
     Indication: PHANTOM PAIN
     Dosage: 50 MG, 2X/DAY
     Route: 048
     Dates: start: 20120502, end: 20120101
  2. PRAVACHOL [Concomitant]
     Dosage: 40 MG, 1X/DAY
  3. PEPCID [Concomitant]
     Dosage: 20 MG, 2X/DAY
  4. LYRICA [Suspect]
     Dosage: UNK
     Route: 048
     Dates: start: 20120101
  5. PROTONIX [Concomitant]
     Dosage: 40 MG, 1X/DAY
  6. WELCHOL [Concomitant]
     Dosage: 625 MG
  7. CELLCEPT [Concomitant]
     Dosage: 750 MG, 2X/DAY
  8. METOPROLOL [Concomitant]
     Dosage: 50 MG, 2X/DAY
  9. PREDNISONE [Concomitant]
     Dosage: 5 MG
  10. LISINOPRIL [Concomitant]
     Dosage: 10 MG, 1X/DAY
  11. INSULIN [Concomitant]
     Dosage: UNK

REACTIONS (1)
  - PHANTOM PAIN [None]
